FAERS Safety Report 6499145-4 (Version None)
Quarter: 2009Q4

REPORT INFORMATION
  Report Type: 
  Country: None (occurrence: None)
  Receive Date: 20091127
  Receipt Date: 20081031
  Transmission Date: 20100525
  Serious: Yes (Other)
  Sender: FDA-Public Use
  Company Number: WAES 0806USA02568

PATIENT
  Age: 65 Year
  Sex: Female

DRUGS (5)
  1. FOSAMAX [Suspect]
     Indication: COMPRESSION FRACTURE
     Dosage: 10 MG/DAILY/PO 70 MG/WKY/PO
     Route: 048
     Dates: start: 20000717, end: 20001123
  2. FOSAMAX [Suspect]
     Indication: OSTEOPOROSIS
     Dosage: 10 MG/DAILY/PO 70 MG/WKY/PO
     Route: 048
     Dates: start: 20000717, end: 20001123
  3. FOSAMAX [Suspect]
     Indication: COMPRESSION FRACTURE
     Dosage: 10 MG/DAILY/PO 70 MG/WKY/PO
     Route: 048
     Dates: start: 20001124, end: 20050817
  4. FOSAMAX [Suspect]
     Indication: OSTEOPOROSIS
     Dosage: 10 MG/DAILY/PO 70 MG/WKY/PO
     Route: 048
     Dates: start: 20001124, end: 20050817
  5. BONIVA [Suspect]

REACTIONS (28)
  - ABDOMINAL PAIN [None]
  - ADVERSE DRUG REACTION [None]
  - ANIMAL BITE [None]
  - BACK INJURY [None]
  - BONE LESION [None]
  - BURSITIS [None]
  - CATARACT [None]
  - CHEST PAIN [None]
  - COMPRESSION FRACTURE [None]
  - DRUG HYPERSENSITIVITY [None]
  - DRUG INEFFECTIVE [None]
  - DYSPNOEA [None]
  - FOOD ALLERGY [None]
  - GASTROOESOPHAGEAL REFLUX DISEASE [None]
  - HERPES ZOSTER [None]
  - INTERVERTEBRAL DISC PROTRUSION [None]
  - KYPHOSIS [None]
  - MUSCLE SPASMS [None]
  - MUSCLE STRAIN [None]
  - NEURITIS [None]
  - OESOPHAGEAL SPASM [None]
  - OSTEONECROSIS [None]
  - OSTEOPOROSIS [None]
  - RADICULOPATHY [None]
  - STRESS [None]
  - TOOTH LOSS [None]
  - WEIGHT DECREASED [None]
  - WOUND DEHISCENCE [None]
